FAERS Safety Report 8782861 (Version 1)
Quarter: 2012Q4

REPORT INFORMATION
  Report Type: 
  Country: US (occurrence: US)
  Receive Date: 20120913
  Receipt Date: 20120913
  Transmission Date: 20130627
  Serious: Yes (Other)
  Sender: FDA-Public Use
  Company Number: US-VERTEX PHARMACEUTICAL INC.-AE-2012-010000

PATIENT
  Sex: Female
  Weight: 55.46 kg

DRUGS (3)
  1. INCIVEK [Suspect]
     Indication: HEPATITIS C
     Route: 048
     Dates: start: 201109, end: 201111
  2. PEGASYS [Concomitant]
     Indication: HEPATITIS C
     Dates: start: 201109, end: 201111
  3. RIBAVIRIN [Concomitant]
     Indication: HEPATITIS C
     Dates: start: 201109, end: 201111

REACTIONS (2)
  - Anaemia [Recovered/Resolved]
  - Drug ineffective [Unknown]
